FAERS Safety Report 7854875-4 (Version None)
Quarter: 2011Q4

REPORT INFORMATION
  Report Type: 
  Country: None (occurrence: None)
  Receive Date: 20111026
  Receipt Date: 20111017
  Transmission Date: 20120403
  Serious: No
  Sender: FDA-Public Use
  Company Number: US-BAYER-2011-101611

PATIENT
  Age: 31 Year
  Sex: Female
  Weight: 55 kg

DRUGS (3)
  1. FISH OIL [Concomitant]
  2. VITAMIN TAB [Concomitant]
  3. CAMPHO-PHENIQUE ANTISEPTIC COLD SORE GEL WITH DA [Suspect]
     Dosage: 1 DF, ONCE
     Route: 048

REACTIONS (4)
  - CHEST DISCOMFORT [None]
  - THROAT IRRITATION [None]
  - ORAL DISCOMFORT [None]
  - PARAESTHESIA [None]
